FAERS Safety Report 8590728-4 (Version None)
Quarter: 2012Q3

REPORT INFORMATION
  Report Type: 
  Country: None (occurrence: None)
  Receive Date: 20120813
  Receipt Date: 20120802
  Transmission Date: 20120928
  Serious: Yes (Hospitalization, Other)
  Sender: FDA-Public Use
  Company Number: US-B.I. PHARMACEUTICALS,INC./RIDGEFIELD-2012-EU-03937GD

PATIENT
  Age: 54 Year
  Sex: Female

DRUGS (2)
  1. BISACODYL [Suspect]
     Indication: LAXATIVE SUPPORTIVE CARE
     Dosage: 3 ANZ
     Route: 048
  2. ESTRADIOL [Suspect]
     Indication: HORMONE REPLACEMENT THERAPY
     Dosage: 0.5 MG
     Route: 048

REACTIONS (8)
  - COLITIS ISCHAEMIC [None]
  - GASTROINTESTINAL NECROSIS [None]
  - HAEMATOCHEZIA [None]
  - GASTROINTESTINAL OEDEMA [None]
  - DIARRHOEA [None]
  - ABDOMINAL PAIN [None]
  - ABDOMINAL PAIN LOWER [None]
  - GASTROINTESTINAL HAEMORRHAGE [None]
